FAERS Safety Report 22384200 (Version 2)
Quarter: 2024Q4

REPORT INFORMATION
  Report Type: Spontaneous
  Country: US (occurrence: US)
  Receive Date: 20230530
  Receipt Date: 20241219
  Transmission Date: 20250115
  Serious: Yes (Other)
  Sender: PFIZER
  Company Number: US-PFIZER INC-PV202300095226

PATIENT
  Age: 51 Year
  Sex: Female

DRUGS (5)
  1. IBRANCE [Suspect]
     Active Substance: PALBOCICLIB
     Indication: Breast cancer female
     Dosage: 125 MG, CYCLIC (EVERY DAY FOR 21 DAYS, THEN HOLD FOR 7 DAYS)
     Route: 048
     Dates: start: 20230517
  2. IBRANCE [Suspect]
     Active Substance: PALBOCICLIB
     Dosage: 100 MG, CYCLIC (TAKE 1 TABLET, ON DAYS 1-21, FOLLOWED BY 7 DAYS OFF, REPEAT EACH CYCLE)
     Route: 048
     Dates: start: 20230614
  3. FASLODEX [Concomitant]
     Active Substance: FULVESTRANT
     Dosage: UNK, (250/5ML)
  4. TOPROL XL [Concomitant]
     Active Substance: METOPROLOL SUCCINATE
     Dosage: UNK
  5. ORSERDU [Concomitant]
     Active Substance: ELACESTRANT
     Dosage: UNK

REACTIONS (12)
  - Neuropathy peripheral [Unknown]
  - Blood iron decreased [Not Recovered/Not Resolved]
  - Nerve injury [Unknown]
  - Burning sensation [Unknown]
  - Hypoaesthesia [Unknown]
  - Peripheral coldness [Not Recovered/Not Resolved]
  - Paraesthesia [Unknown]
  - Pain in extremity [Unknown]
  - Frostbite [Unknown]
  - Skin discolouration [Unknown]
  - Anaemia [Not Recovered/Not Resolved]
  - Fatigue [Not Recovered/Not Resolved]
